FAERS Safety Report 5688362-9 (Version None)
Quarter: 2008Q1

REPORT INFORMATION
  Report Type: 
  Country: None (occurrence: None)
  Receive Date: 20080328
  Receipt Date: 20080328
  Transmission Date: 20080703
  Serious: No
  Sender: FDA-Public Use
  Company Number: None

PATIENT
  Age: 48 Year
  Sex: Female
  Weight: 81.6475 kg

DRUGS (2)
  1. SINGULAIR [Suspect]
     Indication: ASTHMA
     Dosage: 10 MG 1 PER DAY PO
     Route: 048
     Dates: start: 20070331, end: 20070430
  2. SINGULAIR [Suspect]
     Indication: HYPERSENSITIVITY
     Dosage: 10 MG 1 PER DAY PO
     Route: 048
     Dates: start: 20070331, end: 20070430

REACTIONS (4)
  - ANXIETY [None]
  - FEAR [None]
  - NIGHTMARE [None]
  - SLEEP DISORDER [None]
